FAERS Safety Report 23445608 (Version 3)
Quarter: 2024Q2

REPORT INFORMATION
  Report Type: Spontaneous
  Country: US (occurrence: US)
  Receive Date: 20240126
  Receipt Date: 20240401
  Transmission Date: 20240716
  Serious: Yes (Other)
  Sender: FDA-Public Use
  Company Number: US-GSKCCFUS-Case-01838016_AE-102747

PATIENT

DRUGS (2)
  1. BENLYSTA [Suspect]
     Active Substance: BELIMUMAB
     Indication: Cutaneous sarcoidosis
     Dosage: 200 MG
  2. BENLYSTA [Suspect]
     Active Substance: BELIMUMAB
     Indication: Systemic lupus erythematosus

REACTIONS (8)
  - Abortion spontaneous [Unknown]
  - Systemic lupus erythematosus [Unknown]
  - Arthralgia [Unknown]
  - Joint swelling [Unknown]
  - Pain [Unknown]
  - Therapy interrupted [Unknown]
  - Exposure during pregnancy [Unknown]
  - Product dose omission issue [Unknown]

NARRATIVE: CASE EVENT DATE: 20230201
